FAERS Safety Report 9567674 (Version 1)
Quarter: 2013Q3

REPORT INFORMATION
  Report Type: Spontaneous
  Country: US (occurrence: US)
  Receive Date: 20130930
  Receipt Date: 20130930
  Transmission Date: 20140515
  Serious: No
  Sender: FDA-Public Use
  Company Number: US-AMGEN-USASP2013000301

PATIENT
  Age: 57 Year
  Sex: Female

DRUGS (1)
  1. ENBREL [Suspect]
     Indication: RHEUMATOID ARTHRITIS
     Dosage: 50 MG,ONCE WEEKLY
     Dates: start: 20121030

REACTIONS (3)
  - Increased tendency to bruise [Not Recovered/Not Resolved]
  - Injection site bruising [Unknown]
  - Injection site pain [Recovered/Resolved]
